FAERS Safety Report 17420182 (Version 2)
Quarter: 2020Q3

REPORT INFORMATION
  Report Type: Report from Study
  Country: JP (occurrence: JP)
  Receive Date: 20200214
  Receipt Date: 20200810
  Transmission Date: 20201102
  Serious: Yes (Death)
  Sender: FDA-Public Use
  Company Number: JP-ACTELION-A-CH2019-196558

PATIENT
  Age: 75 Year
  Sex: Female
  Weight: 35.7 kg

DRUGS (12)
  1. FEBURIC [Concomitant]
     Active Substance: FEBUXOSTAT
     Indication: HYPERURICAEMIA
     Dosage: 10 MG, QD
     Dates: start: 20160905, end: 2020
  2. ADEMPAS [Concomitant]
     Active Substance: RIOCIGUAT
     Indication: PULMONARY HYPERTENSION
     Dosage: 7.5 MG, QD
     Dates: start: 20160808, end: 2020
  3. DIGOSIN [Concomitant]
     Active Substance: DIGOXIN
     Dosage: 0.125 MG, QD
     Dates: start: 20150601, end: 2020
  4. ALLEGRA [Concomitant]
     Active Substance: FEXOFENADINE HYDROCHLORIDE
     Dosage: 120 MG, QD
     Dates: start: 20170424, end: 2020
  5. UPTRAVI [Suspect]
     Active Substance: SELEXIPAG
     Dosage: 1.2 MG, BID
     Route: 048
     Dates: start: 20180302, end: 20180405
  6. UPTRAVI [Suspect]
     Active Substance: SELEXIPAG
     Indication: PULMONARY HYPERTENSION
     Dosage: 0.2 MG, TID
     Route: 048
     Dates: start: 20171201, end: 20180104
  7. VOLIBRIS [Concomitant]
     Active Substance: AMBRISENTAN
     Indication: PULMONARY HYPERTENSION
     Dosage: 5 MG, QD
     Dates: start: 20150420, end: 2020
  8. UPTRAVI [Suspect]
     Active Substance: SELEXIPAG
     Dosage: 0.4 MG, BID
     Route: 048
     Dates: start: 20180406, end: 2020
  9. UPTRAVI [Suspect]
     Active Substance: SELEXIPAG
     Dosage: 0.4 MG, BID
     Route: 048
     Dates: start: 20180105, end: 20180201
  10. LUPRAC [Concomitant]
     Active Substance: TORSEMIDE
     Dosage: 4 MG, QD
     Dates: start: 20150420, end: 2020
  11. ASPARA POTASSIUM [Concomitant]
     Active Substance: POTASSIUM ASPARTATE
     Indication: HYPOKALAEMIA
     Dosage: 600 MG, QD
     Dates: start: 20160118, end: 2020
  12. UPTRAVI [Suspect]
     Active Substance: SELEXIPAG
     Dosage: 0.8 MG, BID
     Route: 048
     Dates: start: 20180202, end: 20180301

REACTIONS (3)
  - Pulmonary hypertension [Fatal]
  - Condition aggravated [Fatal]
  - Dyspnoea [Recovering/Resolving]

NARRATIVE: CASE EVENT DATE: 20180406
